FAERS Safety Report 6422609-6 (Version None)
Quarter: 2009Q4

REPORT INFORMATION
  Report Type: 
  Country: None (occurrence: None)
  Receive Date: 20091102
  Receipt Date: 20091007
  Transmission Date: 20100525
  Serious: No
  Sender: FDA-Public Use
  Company Number: US-BAYER-200934781NA

PATIENT
  Age: 77 Year
  Sex: Male

DRUGS (9)
  1. LEVITRA [Suspect]
     Indication: ERECTILE DYSFUNCTION
     Dosage: UNIT DOSE: 20 MG
     Dates: start: 20090926
  2. LEVITRA [Suspect]
     Dosage: UNIT DOSE: 20 MG
     Dates: start: 20090927
  3. LEVITRA [Suspect]
     Dosage: UNIT DOSE: 20 MG
  4. FLOMAX [Concomitant]
  5. ASPIRIN [Concomitant]
  6. ALLOPURINOL [Concomitant]
  7. GLIPIZIDE [Concomitant]
  8. CARTIA XT [Concomitant]
  9. BENICAR HCT [Concomitant]

REACTIONS (1)
  - ERECTILE DYSFUNCTION [None]
